FAERS Safety Report 8485211-0 (Version None)
Quarter: 2012Q2

REPORT INFORMATION
  Report Type: 
  Country: None (occurrence: None)
  Receive Date: 20120627
  Receipt Date: 20120627
  Transmission Date: 20120825
  Serious: Yes (Hospitalization)
  Sender: FDA-Public Use
  Company Number: None

PATIENT
  Sex: Female

DRUGS (1)
  1. COPAXONE [Suspect]
     Indication: MULTIPLE SCLEROSIS
     Dosage: 20MG QD SQ
     Route: 058
     Dates: start: 20120117, end: 20120626

REACTIONS (7)
  - ANXIETY [None]
  - CONVULSION [None]
  - DYSPNOEA [None]
  - URTICARIA [None]
  - PALPITATIONS [None]
  - FLUSHING [None]
  - CHEST PAIN [None]
